FAERS Safety Report 6066601-2 (Version None)
Quarter: 2009Q1

REPORT INFORMATION
  Report Type: 
  Country: None (occurrence: None)
  Receive Date: 20090205
  Receipt Date: 20090130
  Transmission Date: 20090719
  Serious: Yes (Other)
  Sender: FDA-Public Use
  Company Number: B0556246A

PATIENT
  Age: 10 Year

DRUGS (1)
  1. RELENZA [Suspect]
     Indication: DRUG USE FOR UNKNOWN INDICATION
     Route: 055
     Dates: start: 20090120, end: 20090121

REACTIONS (5)
  - ABNORMAL BEHAVIOUR [None]
  - DYSKINESIA [None]
  - ENURESIS [None]
  - HEAD TITUBATION [None]
  - MEMORY IMPAIRMENT [None]
